FAERS Safety Report 17463735 (Version 1)
Quarter: 2020Q1

REPORT INFORMATION
  Report Type: Spontaneous
  Country: US (occurrence: US)
  Receive Date: 20200226
  Receipt Date: 20200226
  Transmission Date: 20200409
  Serious: No
  Sender: FDA-Public Use
  Company Number: US-DOVA PHARMACEUTICALS INC.-DOV-000379

PATIENT
  Age: 45 Year
  Sex: Male
  Weight: 92.63 kg

DRUGS (1)
  1. DOPTELET [Suspect]
     Active Substance: AVATROMBOPAG MALEATE
     Indication: IMMUNE THROMBOCYTOPENIC PURPURA
     Dosage: 20 MG, QD
     Route: 048
     Dates: end: 201912

REACTIONS (3)
  - Platelet count decreased [Unknown]
  - Inappropriate schedule of product administration [Unknown]
  - Back pain [Unknown]

NARRATIVE: CASE EVENT DATE: 20191209
